FAERS Safety Report 5416045-9 (Version None)
Quarter: 2007Q3

REPORT INFORMATION
  Report Type: 
  Country: None (occurrence: None)
  Receive Date: 20070815
  Receipt Date: 20070808
  Transmission Date: 20080115
  Serious: No
  Sender: FDA-Public Use
  Company Number: JP-MERCK-0707USA01336

PATIENT
  Age: 74 Year
  Sex: Female

DRUGS (3)
  1. FOSAMAX [Suspect]
     Indication: HAEMANGIOMA
     Route: 048
     Dates: end: 20061201
  2. FOSAMAX [Suspect]
     Route: 048
     Dates: start: 20070626
  3. EVISTA [Concomitant]
     Route: 065
     Dates: start: 20061201, end: 20070626

REACTIONS (6)
  - ABDOMINAL PAIN UPPER [None]
  - ARTHRALGIA [None]
  - BACK PAIN [None]
  - DIARRHOEA [None]
  - MONARTHRITIS [None]
  - TRISMUS [None]
